FAERS Safety Report 18581582 (Version 1)
Quarter: 2020Q4

REPORT INFORMATION
  Report Type: Spontaneous
  Country: US (occurrence: US)
  Receive Date: 20201204
  Receipt Date: 20201204
  Transmission Date: 20210114
  Serious: Yes (Hospitalization)
  Sender: FDA-Public Use
  Company Number: None

PATIENT
  Age: 73 Year
  Sex: Male

DRUGS (13)
  1. FEROSUL [Concomitant]
     Active Substance: FERROUS SULFATE
  2. CALCITROL [Concomitant]
  3. CYCLOSPORINE. [Suspect]
     Active Substance: CYCLOSPORINE
     Indication: RENAL TRANSPLANT
     Dosage: ?          OTHER FREQUENCY:EVERY 12 HOURS;?
     Route: 048
     Dates: start: 20200303
  4. ROSUVASTATIN. [Concomitant]
     Active Substance: ROSUVASTATIN
  5. AMOXICILLIN. [Concomitant]
     Active Substance: AMOXICILLIN
  6. CARVEDILOL. [Concomitant]
     Active Substance: CARVEDILOL
  7. CYCLOSPORINE. [Suspect]
     Active Substance: CYCLOSPORINE
     Indication: RENAL TRANSPLANT
     Dosage: ?          OTHER FREQUENCY:EVERY 12 HOURS;?
     Route: 048
     Dates: start: 20200303
  8. PRAMIPEXOLE. [Concomitant]
     Active Substance: PRAMIPEXOLE
  9. AZATHIOPRINE. [Concomitant]
     Active Substance: AZATHIOPRINE
  10. SPIRONOLACTONE. [Concomitant]
     Active Substance: SPIRONOLACTONE
  11. LOSARTAN. [Concomitant]
     Active Substance: LOSARTAN
  12. TORSEMIDE. [Concomitant]
     Active Substance: TORSEMIDE
  13. NIFEDIPINE. [Concomitant]
     Active Substance: NIFEDIPINE

REACTIONS (1)
  - Oedema [None]

NARRATIVE: CASE EVENT DATE: 20201111
